FAERS Safety Report 6344330-5 (Version None)
Quarter: 2009Q3

REPORT INFORMATION
  Report Type: 
  Country: None (occurrence: None)
  Receive Date: 20090903
  Receipt Date: 20090819
  Transmission Date: 20100115
  Serious: Yes (Other)
  Sender: FDA-Public Use
  Company Number: 1-19579245

PATIENT
  Age: 67 Year
  Sex: Male
  Weight: 77.1115 kg

DRUGS (8)
  1. SOLODYN [Suspect]
     Indication: SKIN DISORDER
     Dosage: 135 MG DAILY, ORAL
     Route: 048
     Dates: start: 20080201
  2. LODINE [Concomitant]
  3. MOBIC [Concomitant]
  4. NAPROSYN [Concomitant]
  5. SEVERAL OTHER UNSPECIFIED NON-STEROIDAL ANTI-INFLAMMATORY DRUGS [Concomitant]
  6. VICODIN (HYDROCODONE AND ACETAMINOPHEN) [Concomitant]
  7. ULTRACET (TRAMADOL HYDROCHLORIDE AND ACETAMINOPHEN) [Concomitant]
  8. NEXIUM [Concomitant]

REACTIONS (3)
  - GASTRIC STENOSIS [None]
  - GASTRIC ULCER [None]
  - SCAR [None]
